FAERS Safety Report 8261765-4 (Version None)
Quarter: 2012Q2

REPORT INFORMATION
  Report Type: 
  Country: None (occurrence: None)
  Receive Date: 20120405
  Receipt Date: 20120402
  Transmission Date: 20120825
  Serious: Yes (Other)
  Sender: FDA-Public Use
  Company Number: ES-PFIZER INC-2012057685

PATIENT
  Age: 43 Year
  Sex: Female

DRUGS (3)
  1. NEURONTIN [Suspect]
     Dosage: 600 MG, 2X/DAY
  2. NEURONTIN [Suspect]
     Dosage: 600 MG, 3X/DAY
  3. NEURONTIN [Suspect]
     Indication: DEPRESSION
     Dosage: 300 MG, 3X/DAY
     Dates: start: 20111101

REACTIONS (3)
  - MENSTRUAL DISORDER [None]
  - VAGINAL HAEMORRHAGE [None]
  - UTERINE LEIOMYOMA [None]
